FAERS Safety Report 9601946 (Version 1)
Quarter: 2013Q4

REPORT INFORMATION
  Report Type: Spontaneous
  Country: DE (occurrence: DE)
  Receive Date: 20131007
  Receipt Date: 20131007
  Transmission Date: 20140711
  Serious: Yes (Hospitalization, Other)
  Sender: FDA-Public Use
  Company Number: DE-SHIRE-ALL1-2013-06607

PATIENT
  Age: 59 Year
  Sex: Female
  Weight: 57 kg

DRUGS (5)
  1. XAGRID [Suspect]
     Indication: PULMONARY EMBOLISM
     Dosage: 1 MG (2 X 0.5 MG), UNKNOWN
     Route: 048
     Dates: start: 20120309, end: 2012
  2. XAGRID [Suspect]
     Indication: ESSENTIAL THROMBOCYTHAEMIA
  3. ASA [Concomitant]
     Indication: MYOCARDIAL INFARCTION
     Dosage: 100 MG, UNKNOWN
     Route: 065
  4. ASA [Concomitant]
     Indication: PULMONARY EMBOLISM
  5. ASA [Concomitant]
     Indication: PLATELET AGGREGATION INHIBITION

REACTIONS (7)
  - Ventricular fibrillation [Unknown]
  - Pulmonary embolism [Unknown]
  - General physical health deterioration [Unknown]
  - Loss of consciousness [Unknown]
  - Circulatory collapse [Unknown]
  - Angina pectoris [Unknown]
  - Acute myocardial infarction [Unknown]
